FAERS Safety Report 15508198 (Version 2)
Quarter: 2018Q4

REPORT INFORMATION
  Report Type: Spontaneous
  Country: US (occurrence: US)
  Receive Date: 20181016
  Receipt Date: 20181102
  Transmission Date: 20190205
  Serious: Yes (Other)
  Sender: FDA-Public Use
  Company Number: US-PFIZER INC-2018281934

PATIENT
  Age: 78 Year
  Sex: Male
  Weight: 84 kg

DRUGS (2)
  1. DETROL LA [Suspect]
     Active Substance: TOLTERODINE TARTRATE
     Indication: PROSTATOMEGALY
  2. DETROL LA [Suspect]
     Active Substance: TOLTERODINE TARTRATE
     Indication: BLADDER DISORDER
     Dosage: 4 MG, 2X/DAY (IN MORNING AND AT NIGHT)
     Route: 048

REACTIONS (6)
  - Decubitus ulcer [Not Recovered/Not Resolved]
  - Gait disturbance [Unknown]
  - Body height decreased [Unknown]
  - Dementia [Not Recovered/Not Resolved]
  - Memory impairment [Not Recovered/Not Resolved]
  - Product use issue [Unknown]

NARRATIVE: CASE EVENT DATE: 201810
